FAERS Safety Report 4622804-2 (Version None)
Quarter: 2005Q1

REPORT INFORMATION
  Report Type: 
  Country: None (occurrence: None)
  Receive Date: 20050329
  Receipt Date: 20050329
  Transmission Date: 20050727
  Serious: Yes (Hospitalization)
  Sender: FDA-Public Use
  Company Number: None

PATIENT
  Age: 71 Year
  Sex: Male
  Weight: 72.6 kg

DRUGS (17)
  1. TARCEVA [Suspect]
     Indication: NON-SMALL CELL LUNG CANCER
     Dosage: 150MG PO QD
     Route: 048
     Dates: start: 20030605, end: 20050311
  2. ALLEGRA [Concomitant]
  3. LUTEIN [Concomitant]
  4. ASPIRIN [Concomitant]
  5. ATIVAN [Concomitant]
  6. BACTROBAN [Concomitant]
  7. CALCIUM CARBONATE/VIT D [Concomitant]
  8. CLEOCIN T [Concomitant]
  9. DEXAMETHASONE [Concomitant]
  10. FLONASE [Concomitant]
  11. MULTI-VITAMINS [Concomitant]
  12. VIT E, [Concomitant]
  13. VITAMIN C [Concomitant]
  14. AGGRENOX [Concomitant]
  15. AMBIEN [Concomitant]
  16. NEOSPORIN [Concomitant]
  17. PLAVIX [Concomitant]

REACTIONS (4)
  - CATHETERISATION CARDIAC ABNORMAL [None]
  - CHEST PAIN [None]
  - CORONARY ARTERY STENOSIS [None]
  - VENOUS STENOSIS [None]
